FAERS Safety Report 5492153-1 (Version None)
Quarter: 2007Q4

REPORT INFORMATION
  Report Type: 
  Country: None (occurrence: None)
  Receive Date: 20071015
  Receipt Date: 20070628
  Transmission Date: 20080405
  Serious: No
  Sender: FDA-Public Use
  Company Number: 2007SP002406

PATIENT
  Age: 93 Year
  Sex: Male
  Weight: 62.1428 kg

DRUGS (13)
  1. LUNESTA [Suspect]
     Indication: INSOMNIA
     Dosage: 2 MG; ORAL; 1 MG; 1X; ORAL
     Route: 048
     Dates: start: 20070628, end: 20070628
  2. LUNESTA [Suspect]
     Indication: INSOMNIA
     Dosage: 2 MG; ORAL; 1 MG; 1X; ORAL
     Route: 048
     Dates: start: 20070627
  3. OXYGEN [Concomitant]
  4. DIGOXIN [Concomitant]
  5. LASIX [Concomitant]
  6. COZAAR [Concomitant]
  7. TAMSULOSIN HCL [Concomitant]
  8. POTASSIUM CHLORIDE [Concomitant]
  9. METOPROLOL TARTRATE [Concomitant]
  10. ENALAPRIL MALEATE [Concomitant]
  11. WARFARIN SODIUM [Concomitant]
  12. RESTORIL [Concomitant]
  13. OXYMETAZOLINE [Concomitant]

REACTIONS (2)
  - DRUG INEFFECTIVE [None]
  - INITIAL INSOMNIA [None]
